FAERS Safety Report 6738991-6 (Version None)
Quarter: 2010Q2

REPORT INFORMATION
  Report Type: 
  Country: None (occurrence: None)
  Receive Date: 20100524
  Receipt Date: 20100524
  Transmission Date: 20101027
  Serious: No
  Sender: FDA-Public Use
  Company Number: None

PATIENT
  Age: 73 Year
  Sex: Male

DRUGS (1)
  1. AZITHROMYCIN [Suspect]
     Indication: PNEUMONIA
     Dosage: 500 MG EVERY DAY IV
     Route: 042
     Dates: start: 20100220, end: 20100220

REACTIONS (3)
  - BLOOD PRESSURE DECREASED [None]
  - INFUSION RELATED REACTION [None]
  - PRURITUS [None]
